FAERS Safety Report 16169794 (Version 1)
Quarter: 2019Q2

REPORT INFORMATION
  Report Type: Spontaneous
  Country: US (occurrence: US)
  Receive Date: 20190305
  Receipt Date: 20190305
  Transmission Date: 20190711
  Serious: Yes (Hospitalization)
  Sender: FDA-Public Use
  Company Number: None

PATIENT
  Age: 70 Year
  Sex: Male
  Weight: 140.4 kg

DRUGS (9)
  1. TAXOL [Suspect]
     Active Substance: PACLITAXEL
     Dates: end: 20190211
  2. CANAGLIFLOZIN [Concomitant]
     Active Substance: CANAGLIFLOZIN
  3. METFORMIN [Concomitant]
     Active Substance: METFORMIN HYDROCHLORIDE
  4. APIXABAN [Concomitant]
     Active Substance: APIXABAN
  5. METOPROLOL. [Concomitant]
     Active Substance: METOPROLOL
  6. CISPLATIN. [Suspect]
     Active Substance: CISPLATIN
     Dates: end: 20190213
  7. IFOSFAMIDE. [Suspect]
     Active Substance: IFOSFAMIDE
     Dates: end: 20190213
  8. GLIPIZIDE. [Concomitant]
     Active Substance: GLIPIZIDE
  9. LOSARTAN. [Concomitant]
     Active Substance: LOSARTAN

REACTIONS (3)
  - Pneumonia [None]
  - Cellulitis [None]
  - Pyrexia [None]

NARRATIVE: CASE EVENT DATE: 20190221
